FAERS Safety Report 9657226 (Version 2)
Quarter: 2013Q4

REPORT INFORMATION
  Report Type: Spontaneous
  Country: AU (occurrence: AU)
  Receive Date: 20131030
  Receipt Date: 20131104
  Transmission Date: 20140711
  Serious: Yes (Other)
  Sender: FDA-Public Use
  Company Number: AU-ABBVIE-13P-008-1162524-00

PATIENT
  Age: 57 Year
  Sex: Male
  Weight: 80 kg

DRUGS (4)
  1. HUMIRA [Suspect]
     Indication: PSORIASIS
     Dates: start: 201305
  2. PARIET [Concomitant]
     Indication: GASTROOESOPHAGEAL REFLUX DISEASE
  3. CITALOPRAM [Concomitant]
     Indication: DEPRESSION
  4. CITALOPRAM [Concomitant]
     Indication: ANXIETY

REACTIONS (1)
  - Renal impairment [Not Recovered/Not Resolved]
